FAERS Safety Report 7755834-2 (Version None)
Quarter: 2011Q3

REPORT INFORMATION
  Report Type: 
  Country: None (occurrence: None)
  Receive Date: 20110915
  Receipt Date: 20110915
  Transmission Date: 20111222
  Serious: Yes (Hospitalization)
  Sender: FDA-Public Use
  Company Number: None

PATIENT
  Sex: Male
  Weight: 79.12 kg

DRUGS (5)
  1. DOXORUBICIN HYDROCHLORIDE [Suspect]
     Dosage: 72 MG
  2. RITUXIMAB (MOAB C2B8 ANTI CD20, CHIMERIC) [Suspect]
     Dosage: 700 MG
  3. PREDNISONE [Concomitant]
     Dosage: 1100 MG
  4. CYCLOPHOSPHAMIDE [Suspect]
     Dosage: 1387 MG
  5. VINCRISTINE SULFATE [Suspect]
     Dosage: 2.8 MG

REACTIONS (5)
  - LYMPHOCYTE COUNT DECREASED [None]
  - NEUTROPHIL COUNT DECREASED [None]
  - ANAEMIA [None]
  - BLOOD ALBUMIN DECREASED [None]
  - WHITE BLOOD CELL COUNT DECREASED [None]
